FAERS Safety Report 9633827 (Version 1)
Quarter: 2013Q4

REPORT INFORMATION
  Report Type: Spontaneous
  Country: US (occurrence: US)
  Receive Date: 20131021
  Receipt Date: 20131021
  Transmission Date: 20140711
  Serious: Yes (Other)
  Sender: FDA-Public Use
  Company Number: US-JNJFOC-20131008738

PATIENT
  Age: 59 Year
  Sex: Female
  Weight: 68.04 kg

DRUGS (2)
  1. SIMPONI [Suspect]
     Indication: RHEUMATOID ARTHRITIS
     Dosage: STARTED ABOUT 3 YEARS AGO
     Route: 058
  2. MEDROL [Concomitant]
     Indication: ARTHRITIS
     Route: 048

REACTIONS (6)
  - Body height decreased [Not Recovered/Not Resolved]
  - Intervertebral disc protrusion [Not Recovered/Not Resolved]
  - Spinal column stenosis [Not Recovered/Not Resolved]
  - Osteoporosis [Not Recovered/Not Resolved]
  - Drug dose omission [Unknown]
  - Device malfunction [Recovered/Resolved]
